FAERS Safety Report 17562238 (Version 1)
Quarter: 2020Q1

REPORT INFORMATION
  Report Type: Spontaneous
  Country: FR (occurrence: FR)
  Receive Date: 20200319
  Receipt Date: 20200319
  Transmission Date: 20200409
  Serious: Yes (Other)
  Sender: FDA-Public Use
  Company Number: FR-MYLANLABS-2020M1028812

PATIENT
  Age: 70 Year
  Sex: Female

DRUGS (9)
  1. TAKADOL [Suspect]
     Active Substance: TRAMADOL
     Dosage: UNK (50 MILLIGRAMS IN THE MORNING + 25 MILLIGRAMS IN THE AFTERNOON)
     Route: 065
     Dates: start: 2020
  2. PROPRANOLOL [Concomitant]
     Active Substance: PROPRANOLOL HYDROCHLORIDE
     Indication: HYPERTENSION
     Dosage: UNK
     Route: 065
  3. TAKADOL [Suspect]
     Active Substance: TRAMADOL
     Indication: PROCEDURAL PAIN
     Dosage: 3 DOSAGE FORM, QD
     Dates: start: 201904
  4. EFFERALGAN [Concomitant]
     Active Substance: ACETAMINOPHEN
     Indication: PAIN
     Dosage: 3 DOSAGE FORM, QD
     Route: 065
     Dates: start: 20171211
  5. TAKADOL [Suspect]
     Active Substance: TRAMADOL
     Dosage: UNK (1/2 TABLET IN THE MORNING AND 1/4 TABLET IN THE AFTERNOON IF NEEDED)
     Route: 065
     Dates: end: 201912
  6. TAKADOL [Suspect]
     Active Substance: TRAMADOL
     Dosage: 0.25 DOSAGE FORM, QD
     Route: 065
     Dates: start: 201912
  7. TAKADOL [Suspect]
     Active Substance: TRAMADOL
     Dosage: 0.5 DOSAGE FORM, Q8H (1/2 TABLET THREE TIMES DAILY)
     Route: 065
     Dates: start: 201908
  8. TRAMADOL. [Suspect]
     Active Substance: TRAMADOL
     Indication: PROCEDURAL PAIN
     Dosage: 3 DOSAGE FORM, QD (REDUCTION TO HALF A DOSE SOME DAYS)
     Route: 065
     Dates: start: 201712, end: 201904
  9. AMLOR [Concomitant]
     Active Substance: AMLODIPINE BESYLATE
     Indication: HYPERTENSION
     Dosage: UNK
     Route: 065

REACTIONS (5)
  - Drug dependence [Recovering/Resolving]
  - Depression [Unknown]
  - Drug abuse [Unknown]
  - Fatigue [Recovering/Resolving]
  - Withdrawal syndrome [Recovering/Resolving]

NARRATIVE: CASE EVENT DATE: 2019
